FAERS Safety Report 7878437-8 (Version None)
Quarter: 2011Q4

REPORT INFORMATION
  Report Type: 
  Country: None (occurrence: None)
  Receive Date: 20111101
  Receipt Date: 20111018
  Transmission Date: 20120403
  Serious: Yes (Other)
  Sender: FDA-Public Use
  Company Number: US-RANBAXY-2011US-50026

PATIENT

DRUGS (2)
  1. ZYRTEC [Concomitant]
     Indication: PRODUCT USED FOR UNKNOWN INDICATION
     Dosage: UNK
     Route: 065
     Dates: start: 20111017
  2. IBUPROFEN + PSEUDOEPHEDRINE HCL [Suspect]
     Indication: PRODUCT USED FOR UNKNOWN INDICATION
     Dosage: 200/30 MG ONCE
     Route: 048
     Dates: start: 20111018, end: 20111018

REACTIONS (5)
  - PYREXIA [None]
  - HYPERSENSITIVITY [None]
  - HEART RATE INCREASED [None]
  - DYSPNOEA [None]
  - CROSS SENSITIVITY REACTION [None]
